FAERS Safety Report 7692154 (Version 4)
Quarter: 2013Q1

REPORT INFORMATION
  Report Type: Spontaneous
  Country: US (occurrence: US)
  Receive Date: 20101204
  Receipt Date: 20130130
  Transmission Date: 20140127
  Serious: Yes (Hospitalization)
  Sender: FDA-Public Use
  Company Number: US-BAYER-201042119NA

PATIENT
  Age: 23 Year
  Sex: Female
  Weight: 73 kg

DRUGS (8)
  1. YAZ [Suspect]
     Dosage: UNK UNK, UNK
     Route: 048
     Dates: start: 20040612, end: 20040712
  2. YASMIN [Suspect]
     Indication: CONTRACEPTION
     Dosage: UNK UNK, UNK
     Route: 048
     Dates: start: 200406
  3. PROZAC [Concomitant]
     Indication: DEPRESSION
     Dosage: 20 MG, UNK
     Route: 048
     Dates: start: 2002
  4. NSAID^S [Concomitant]
  5. MONOCLINE [Concomitant]
     Indication: ACNE
     Dosage: UNK UNK, PRN
     Route: 048
  6. TAZORAC [Concomitant]
     Route: 061
  7. FLONASE [Concomitant]
     Route: 045
  8. MINOSINE [Concomitant]

REACTIONS (3)
  - Cerebrovascular accident [Recovering/Resolving]
  - Thrombosis [None]
  - Injury [Unknown]
